FAERS Safety Report 6196028-4 (Version None)
Quarter: 2009Q2

REPORT INFORMATION
  Report Type: 
  Country: None (occurrence: None)
  Receive Date: 20090520
  Receipt Date: 20050707
  Transmission Date: 20091009
  Serious: Yes (Hospitalization)
  Sender: FDA-Public Use
  Company Number: NL-ROCHE-599607

PATIENT
  Sex: Male

DRUGS (12)
  1. CAPECITABINE [Suspect]
     Dosage: 12 CYCLES
     Route: 048
     Dates: start: 20030321, end: 20031107
  2. CAPECITABINE [Suspect]
     Dosage: C1
     Route: 048
     Dates: start: 20040210
  3. CAPECITABINE [Suspect]
     Dosage: C2
     Route: 048
     Dates: start: 20040302
  4. CAPECITABINE [Suspect]
     Dosage: C3
     Route: 048
     Dates: start: 20040323
  5. CAPECITABINE [Suspect]
     Dosage: C4
     Route: 048
     Dates: start: 20040413
  6. IRINOTECAN HCL [Suspect]
     Dosage: 3 CYCLES
     Route: 065
     Dates: start: 20031201, end: 20040113
  7. OXALIPLATIN [Suspect]
     Dosage: C1
     Route: 042
     Dates: start: 20040210
  8. OXALIPLATIN [Suspect]
     Route: 042
     Dates: start: 20040302
  9. OXALIPLATIN [Suspect]
     Dosage: C3
     Route: 042
     Dates: start: 20040323
  10. OXALIPLATIN [Suspect]
     Dosage: C4
     Route: 042
     Dates: start: 20040413
  11. SUCRALFATE [Concomitant]
     Dates: start: 20040323
  12. DOMPERIDON [Concomitant]
     Dates: start: 20040323

REACTIONS (4)
  - ABDOMINAL PAIN LOWER [None]
  - ASCITES [None]
  - CONSTIPATION [None]
  - FLATULENCE [None]
